FAERS Safety Report 5317039-4 (Version None)
Quarter: 2007Q2

REPORT INFORMATION
  Report Type: 
  Country: None (occurrence: None)
  Receive Date: 20070504
  Receipt Date: 20070420
  Transmission Date: 20071010
  Serious: Yes (Hospitalization)
  Sender: FDA-Public Use
  Company Number: JP-ROCHE-490825

PATIENT
  Age: 28 Year
  Sex: Male
  Weight: 54 kg

DRUGS (6)
  1. TAMIFLU [Suspect]
     Route: 048
     Dates: start: 20070307, end: 20070309
  2. FLOMOX [Concomitant]
     Route: 048
     Dates: start: 20070307
  3. LASIX [Concomitant]
     Route: 042
     Dates: start: 20070301
  4. MEYLON [Concomitant]
     Route: 041
     Dates: start: 20070301
  5. METHYLPREDNISOLONE SODIUM SUCCINATE [Concomitant]
     Dosage: TRADE NAME NOT REPORTED.
     Route: 042
     Dates: start: 20070301
  6. IMMUNE GLOBULIN INTRAVENOUS (HUMAN) [Concomitant]
     Dosage: GENERIC REPORTED AS FREEZE-DRIED SULFONATED HUMAN.
     Route: 042
     Dates: start: 20070309, end: 20070311

REACTIONS (1)
  - ABNORMAL BEHAVIOUR [None]
